FAERS Safety Report 9467701 (Version 1)
Quarter: 2013Q3

REPORT INFORMATION
  Report Type: Spontaneous
  Country: BR (occurrence: BR)
  Receive Date: 20130821
  Receipt Date: 20130821
  Transmission Date: 20140515
  Serious: Yes (Other)
  Sender: FDA-Public Use
  Company Number: BR-JNJFOC-20130805682

PATIENT
  Age: 54 Year
  Sex: Female
  Weight: 75 kg

DRUGS (8)
  1. REMICADE [Suspect]
     Indication: COLITIS
     Route: 042
     Dates: start: 20130715
  2. REMICADE [Suspect]
     Indication: COLITIS
     Route: 042
     Dates: start: 201211
  3. REMICADE [Suspect]
     Indication: COLITIS
     Route: 042
     Dates: start: 2011
  4. REMICADE [Suspect]
     Indication: ANKYLOSING SPONDYLITIS
     Route: 042
     Dates: start: 201211
  5. REMICADE [Suspect]
     Indication: ANKYLOSING SPONDYLITIS
     Route: 042
     Dates: start: 2011
  6. REMICADE [Suspect]
     Indication: ANKYLOSING SPONDYLITIS
     Route: 042
     Dates: start: 20130715
  7. VENLAFAXINE [Suspect]
     Indication: SLEEP DISORDER THERAPY
     Route: 065
     Dates: start: 20130629
  8. RIVOTRIL [Suspect]
     Indication: DEPRESSION
     Route: 065

REACTIONS (8)
  - Tremor [Not Recovered/Not Resolved]
  - Hepatic steatosis [Not Recovered/Not Resolved]
  - Memory impairment [Not Recovered/Not Resolved]
  - Infusion related reaction [Recovered/Resolved]
  - Blood pressure increased [Recovered/Resolved]
  - Vomiting [Not Recovered/Not Resolved]
  - Limb injury [Recovered/Resolved]
  - Chest discomfort [Recovered/Resolved]
